FAERS Safety Report 7951140-1 (Version None)
Quarter: 2011Q4

REPORT INFORMATION
  Report Type: 
  Country: None (occurrence: None)
  Receive Date: 20111201
  Receipt Date: 20111124
  Transmission Date: 20120403
  Serious: Yes (Death, Other)
  Sender: FDA-Public Use
  Company Number: IT-BRISTOL-MYERS SQUIBB COMPANY-16248924

PATIENT
  Sex: Female

DRUGS (2)
  1. METHOTREXATE [Suspect]
     Indication: RHEUMATOID ARTHRITIS
  2. ABATACEPT [Suspect]
     Indication: RHEUMATOID ARTHRITIS

REACTIONS (2)
  - BONE MARROW FAILURE [None]
  - CARDIOVASCULAR DISORDER [None]
